FAERS Safety Report 22032786 (Version 1)
Quarter: 2023Q1

REPORT INFORMATION
  Report Type: Spontaneous
  Country: US (occurrence: None)
  Receive Date: 20230222
  Receipt Date: 20230222
  Transmission Date: 20230417
  Serious: No
  Sender: FDA-Public Use
  Company Number: None

PATIENT
  Age: 23 Year
  Sex: Female
  Weight: 67.5 kg

DRUGS (2)
  1. DEXTROAMPHET SACCHARAT, AMPHET ASPARTATE, DEXTROAMPHET SULFATE AND AMP [Suspect]
     Active Substance: AMPHETAMINE ASPARTATE\AMPHETAMINE SULFATE\DEXTROAMPHETAMINE SACCHARATE\DEXTROAMPHETAMINE SULFATE
     Indication: Attention deficit hyperactivity disorder
     Dosage: OTHER QUANTITY : 1 CAPSULE(S);?FREQUENCY : DAILY;?
     Route: 048
     Dates: start: 20230203
  2. KYLEENA [Concomitant]
     Active Substance: LEVONORGESTREL

REACTIONS (16)
  - Product physical issue [None]
  - Fatigue [None]
  - Attention deficit hyperactivity disorder [None]
  - Therapeutic product effect decreased [None]
  - Fatigue [None]
  - Disturbance in attention [None]
  - Loss of personal independence in daily activities [None]
  - Fear [None]
  - Emotional disorder [None]
  - Anxiety [None]
  - Product substitution issue [None]
  - Product availability issue [None]
  - Therapy interrupted [None]
  - Condition aggravated [None]
  - Attention deficit hyperactivity disorder [None]
  - Product complaint [None]

NARRATIVE: CASE EVENT DATE: 20230203
